FAERS Safety Report 13151441 (Version 2)
Quarter: 2018Q1

REPORT INFORMATION
  Report Type: Spontaneous
  Country: US (occurrence: US)
  Receive Date: 20170125
  Receipt Date: 20180201
  Transmission Date: 20180508
  Serious: No
  Sender: FDA-Public Use
  Company Number: US-KADMON PHARMACEUTICALS, LLC-KAD201507-002038

PATIENT
  Sex: Female

DRUGS (1)
  1. RIBAVIRIN. [Suspect]
     Active Substance: RIBAVIRIN
     Indication: HEPATITIS C
     Dosage: TABLET
     Route: 048

REACTIONS (7)
  - Diabetes mellitus [Unknown]
  - Treatment failure [Unknown]
  - Weight increased [Recovering/Resolving]
  - Systemic lupus erythematosus [Unknown]
  - Alopecia [Unknown]
  - Feeling abnormal [Unknown]
  - Drug intolerance [Unknown]
